FAERS Safety Report 20205048 (Version 1)
Quarter: 2021Q4

REPORT INFORMATION
  Report Type: Report from Study
  Country: US (occurrence: US)
  Receive Date: 20211220
  Receipt Date: 20211220
  Transmission Date: 20220304
  Serious: Yes (Other)
  Sender: FDA-Public Use
  Company Number: US-ABBVIE-21K-163-4201344-00

PATIENT
  Age: 73 Year
  Sex: Female

DRUGS (1)
  1. IMBRUVICA [Suspect]
     Active Substance: IBRUTINIB
     Indication: Product used for unknown indication
     Route: 048
     Dates: end: 202112

REACTIONS (4)
  - Dialysis [Unknown]
  - Blood pressure abnormal [Not Recovered/Not Resolved]
  - Anxiety [Unknown]
  - Visual impairment [Unknown]

NARRATIVE: CASE EVENT DATE: 20211201
